FAERS Safety Report 6356573-5 (Version None)
Quarter: 2009Q3

REPORT INFORMATION
  Report Type: 
  Country: None (occurrence: None)
  Receive Date: 20090915
  Receipt Date: 20090911
  Transmission Date: 20100115
  Serious: Yes (Life-Threatening)
  Sender: FDA-Public Use
  Company Number: JP-ASTRAZENECA-2009SE07042

PATIENT
  Age: 29783 Day
  Sex: Female
  Weight: 50 kg

DRUGS (2)
  1. ANAPEINE INJECTION [Suspect]
     Indication: EPIDURAL ANAESTHESIA
     Dosage: 7.5 MG/ML, 112.5 MG ONCE
     Route: 008
     Dates: start: 20090806, end: 20090806
  2. XYLOCAINE [Suspect]
     Indication: EPIDURAL ANAESTHESIA
     Route: 008
     Dates: start: 20090806, end: 20090806

REACTIONS (1)
  - CONVULSION [None]
